FAERS Safety Report 9156572 (Version 1)
Quarter: 2013Q1

REPORT INFORMATION
  Report Type: Spontaneous
  Country: US (occurrence: None)
  Receive Date: 20130308
  Receipt Date: 20130308
  Transmission Date: 20140127
  Serious: No
  Sender: FDA-Public Use
  Company Number: None

PATIENT
  Sex: Male
  Weight: 24.04 kg

DRUGS (1)
  1. METHYLPHENIDATE [Suspect]
     Indication: ATTENTION DEFICIT/HYPERACTIVITY DISORDER
     Dosage: 1 PILL IN A.M. PO
     Route: 048
     Dates: start: 20130216, end: 20130219

REACTIONS (5)
  - Mood swings [None]
  - Depression [None]
  - Anger [None]
  - Abnormal behaviour [None]
  - Feeling abnormal [None]
